FAERS Safety Report 9346765 (Version 3)
Quarter: 2014Q4

REPORT INFORMATION
  Report Type: Spontaneous
  Country: US (occurrence: GB)
  Receive Date: 20130613
  Receipt Date: 20141021
  Transmission Date: 20150529
  Serious: Yes (Hospitalization, Other)
  Sender: FDA-Public Use
  Company Number: US-ASTRAZENECA-2013SE27234

PATIENT
  Age: 73 Year
  Sex: Female
  Weight: 50.8 kg

DRUGS (15)
  1. LEVO THYROXIN [Concomitant]
  2. CALCICHEW D3 [Concomitant]
     Active Substance: CALCIUM\CHOLECALCIFEROL
  3. VITAMIN D [Concomitant]
     Active Substance: CHOLECALCIFEROL
  4. AZITHROMYCIN [Concomitant]
     Active Substance: AZITHROMYCIN ANHYDROUS
     Dates: start: 20090522
  5. FOLIC ACID. [Concomitant]
     Active Substance: FOLIC ACID
     Indication: BLOOD DISORDER
  6. BENDROFLUMETHIAZIDE [Concomitant]
     Active Substance: BENDROFLUMETHIAZIDE
     Indication: BLOOD PRESSURE ABNORMAL
     Dosage: 2.5
  7. WARFARIN [Concomitant]
     Active Substance: WARFARIN
     Dates: start: 2007, end: 2008
  8. CLOXIN [Concomitant]
     Dates: start: 2008, end: 2012
  9. XANAX [Concomitant]
     Active Substance: ALPRAZOLAM
     Dates: start: 20070329
  10. NEXIUM [Suspect]
     Active Substance: ESOMEPRAZOLE MAGNESIUM
     Indication: GASTROOESOPHAGEAL REFLUX DISEASE
     Route: 048
     Dates: start: 20040611
  11. LOSEC [Concomitant]
     Active Substance: OMEPRAZOLE
     Dosage: 11 YEARS AGO
  12. RIVAROXABAN [Concomitant]
     Active Substance: RIVAROXABAN
     Indication: PROPHYLAXIS
  13. URSODEOXYCHOLIC ACID [Concomitant]
     Active Substance: URSODIOL
     Indication: PROPHYLAXIS
  14. NEXIUM [Suspect]
     Active Substance: ESOMEPRAZOLE MAGNESIUM
     Indication: GASTROOESOPHAGEAL REFLUX DISEASE
     Dosage: 40 MG ONE TO TWO TIMES A DAY
     Route: 048
     Dates: start: 2002
  15. TEMAZEPAM. [Concomitant]
     Active Substance: TEMAZEPAM
     Dates: start: 20070430

REACTIONS (14)
  - Fall [Unknown]
  - Hip fracture [Unknown]
  - Pulmonary embolism [Unknown]
  - Multiple fractures [Unknown]
  - Rib fracture [Unknown]
  - Osteoporosis [Unknown]
  - Bone disorder [Unknown]
  - Arthritis [Unknown]
  - Groin pain [Unknown]
  - Femur fracture [Unknown]
  - Arthralgia [Unknown]
  - Balance disorder [Unknown]
  - Femoral neck fracture [Unknown]
  - Osteopenia [Unknown]

NARRATIVE: CASE EVENT DATE: 20060317
